FAERS Safety Report 8374973-9 (Version None)
Quarter: 2012Q2

REPORT INFORMATION
  Report Type: 
  Country: None (occurrence: None)
  Receive Date: 20120521
  Receipt Date: 20120514
  Transmission Date: 20120825
  Serious: Yes (Hospitalization)
  Sender: FDA-Public Use
  Company Number: DE-ROCHE-1069211

PATIENT
  Age: 60 Year
  Sex: Female
  Weight: 68 kg

DRUGS (4)
  1. COPEGUS [Suspect]
     Dosage: DOSE REDUCED
  2. PEGASYS [Suspect]
     Indication: HEPATITIS C
     Route: 058
     Dates: start: 20120122
  3. PEGASYS [Suspect]
     Dosage: DOSE REDUCED
  4. COPEGUS [Suspect]
     Indication: HEPATITIS C

REACTIONS (2)
  - ANAEMIA [None]
  - OEDEMA PERIPHERAL [None]
